APPROVED DRUG PRODUCT: ELOXATIN
Active Ingredient: OXALIPLATIN
Strength: 50MG/VIAL **Federal Register determination that product was not discontinued or withdrawn for safety or effectiveness reasons**
Dosage Form/Route: INJECTABLE;INTRAVENOUS
Application: N021492 | Product #001
Applicant: SANOFI AVENTIS US LLC
Approved: Aug 9, 2002 | RLD: Yes | RS: No | Type: DISCN